FAERS Safety Report 7984847-0 (Version None)
Quarter: 2011Q4

REPORT INFORMATION
  Report Type: 
  Country: None (occurrence: None)
  Receive Date: 20111216
  Receipt Date: 20111207
  Transmission Date: 20120403
  Serious: Yes (Hospitalization)
  Sender: FDA-Public Use
  Company Number: NL-NOVOPROD-341009

PATIENT

DRUGS (5)
  1. GLIMEPIRIDE [Concomitant]
     Dosage: 1
     Dates: start: 20080101
  2. METFORMIN HCL [Concomitant]
     Dosage: 3
     Dates: start: 20070101
  3. ENALAPRIL MALEATE [Concomitant]
     Dosage: 1
     Dates: start: 20070101
  4. ROSUVASTATIN [Concomitant]
     Dosage: 1
     Dates: start: 20070101
  5. VICTOZA [Suspect]
     Indication: TYPE 2 DIABETES MELLITUS
     Dosage: UNK
     Route: 065
     Dates: start: 20110516, end: 20111103

REACTIONS (1)
  - PANCREATITIS [None]
